FAERS Safety Report 10155798 (Version 1)
Quarter: 2014Q2

REPORT INFORMATION
  Report Type: Report from Study
  Country: BR (occurrence: BR)
  Receive Date: 20140506
  Receipt Date: 20140506
  Transmission Date: 20141212
  Serious: Yes (Other)
  Sender: FDA-Public Use
  Company Number: PHHY2014BR053814

PATIENT
  Sex: Female
  Weight: 98 kg

DRUGS (7)
  1. METFORMIN SANDOZ [Suspect]
     Indication: DIABETES MELLITUS
     Dosage: 850 MG, TID
     Route: 048
  2. OMEPRAZOLE [Concomitant]
     Indication: ABDOMINAL PAIN UPPER
  3. AAS [Concomitant]
     Indication: DIABETES MELLITUS
  4. SIMVASTATIN [Concomitant]
  5. LOSARTAN [Concomitant]
  6. ALDACTONE [Concomitant]
  7. GLIMEPIRIDE [Concomitant]

REACTIONS (12)
  - Burning sensation [Unknown]
  - Asthenia [Unknown]
  - Pain [Unknown]
  - Arthralgia [Unknown]
  - Eating disorder [Unknown]
  - Gait disturbance [Unknown]
  - Cerebrovascular accident [Unknown]
  - Dyspnoea [Unknown]
  - Intervertebral disc protrusion [Unknown]
  - Hypoaesthesia [Unknown]
  - Vein disorder [Unknown]
  - Decreased appetite [Unknown]
